FAERS Safety Report 4614798-0 (Version None)
Quarter: 2005Q1

REPORT INFORMATION
  Report Type: 
  Country: None (occurrence: None)
  Receive Date: 20050322
  Receipt Date: 20050311
  Transmission Date: 20050727
  Serious: Yes (Hospitalization)
  Sender: FDA-Public Use
  Company Number: 200512275GDDC

PATIENT
  Age: 55 Year
  Sex: Female

DRUGS (5)
  1. AMARYL [Suspect]
     Indication: DIABETES MELLITUS
     Dosage: DOSE: UNK
     Route: 048
     Dates: start: 20050302, end: 20050310
  2. ACEBUTOLOL [Concomitant]
     Dosage: DOSE: UNK
     Route: 048
  3. METFORMIN HCL [Concomitant]
     Route: 048
  4. INDAPAMIDE [Concomitant]
     Dosage: DOSE: UNK
     Route: 048
  5. LISINOPRIL [Concomitant]
     Dosage: DOSE: UNK
     Dates: start: 19990101

REACTIONS (1)
  - ANGIONEUROTIC OEDEMA [None]
